FAERS Safety Report 11528640 (Version 1)
Quarter: 2015Q3

REPORT INFORMATION
  Report Type: Spontaneous
  Country: FR (occurrence: FR)
  Receive Date: 20150921
  Receipt Date: 20150921
  Transmission Date: 20151125
  Serious: Yes (Other)
  Sender: FDA-Public Use
  Company Number: FR-009507513-1509FRA009389

PATIENT
  Age: 60 Year
  Sex: Female

DRUGS (9)
  1. EMEND [Suspect]
     Active Substance: APREPITANT
     Dosage: UNK
     Route: 048
     Dates: start: 201506, end: 201507
  2. TAXOTERE [Suspect]
     Active Substance: DOCETAXEL
     Dosage: 140 MG AT THE FIRST AND SECOND COURSE
     Route: 041
     Dates: start: 20150701, end: 20150721
  3. SOLUPRED [Suspect]
     Active Substance: PREDNISOLONE
     Dosage: 50 MG TWICE A DAY ON DAY 1 AND DAY 2
     Dates: start: 20150701, end: 20150721
  4. HERCEPTIN [Concomitant]
     Active Substance: TRASTUZUMAB
     Dosage: 628 MG AT THE FIRST COURSE
     Route: 041
     Dates: start: 20150630, end: 2015
  5. SOLU-MEDROL [Concomitant]
     Active Substance: METHYLPREDNISOLONE SODIUM SUCCINATE
     Dosage: UNK
     Route: 041
  6. ZOPHREN (ONDANSETRON) [Concomitant]
     Active Substance: ONDANSETRON
     Dosage: UNK
     Route: 041
     Dates: start: 20150701
  7. ENDOXAN [Suspect]
     Active Substance: CYCLOPHOSPHAMIDE
     Dosage: 1120 MG AT THE FIRST AND THE SECOND COURSE
     Route: 041
     Dates: start: 20150701, end: 20150721
  8. APROVEL [Concomitant]
     Active Substance: IRBESARTAN
     Dosage: 1 DF, QD
  9. HERCEPTIN [Concomitant]
     Active Substance: TRASTUZUMAB
     Dosage: 466 MG AT THE SECOND COURSE
     Route: 041
     Dates: start: 20150721, end: 2015

REACTIONS (1)
  - Retinal detachment [Recovered/Resolved]

NARRATIVE: CASE EVENT DATE: 20150803
